FAERS Safety Report 10148981 (Version 1)
Quarter: 2014Q2

REPORT INFORMATION
  Report Type: Spontaneous
  Country: US (occurrence: US)
  Receive Date: 20140502
  Receipt Date: 20140502
  Transmission Date: 20141212
  Serious: Yes (Other)
  Sender: FDA-Public Use
  Company Number: US-BRISTOL-MYERS SQUIBB COMPANY-20661880

PATIENT
  Age: 51 Year
  Sex: Male
  Weight: 81.63 kg

DRUGS (1)
  1. BARACLUDE [Suspect]
     Indication: HEPATIC CIRRHOSIS

REACTIONS (3)
  - Blindness [Unknown]
  - Diabetes mellitus [Unknown]
  - Cystitis [Unknown]
